FAERS Safety Report 21649407 (Version 1)
Quarter: 2022Q4

REPORT INFORMATION
  Report Type: Spontaneous
  Country: US (occurrence: None)
  Receive Date: 20221123
  Receipt Date: 20221123
  Transmission Date: 20230113
  Serious: Yes (Other)
  Sender: FDA-Public Use
  Company Number: None

PATIENT
  Age: 63 Year
  Sex: Male
  Weight: 71.1 kg

DRUGS (20)
  1. BREXUCABTAGENE AUTOLEUCEL [Suspect]
     Active Substance: BREXUCABTAGENE AUTOLEUCEL
     Indication: Mantle cell lymphoma
     Dosage: 68 ML  ONCE INTRAVENOUS DRIP
     Route: 041
     Dates: start: 20221010, end: 20221010
  2. ASPIRIN [Concomitant]
     Active Substance: ASPIRIN
     Dates: start: 20221010, end: 20221020
  3. CHLORHEXIDINE [Concomitant]
     Active Substance: CHLORHEXIDINE
     Dates: start: 20221010, end: 20221020
  4. CIPROFLOXACIN [Concomitant]
     Active Substance: CIPROFLOXACIN
     Dates: start: 20221010, end: 20221020
  5. DIGOXIN [Concomitant]
     Active Substance: DIGOXIN
     Dates: end: 20221020
  6. DOCUSATE SODIUM [Concomitant]
     Active Substance: DOCUSATE SODIUM
     Dates: start: 20221011, end: 20221019
  7. ENOXAPARIN [Concomitant]
     Active Substance: ENOXAPARIN
     Dates: start: 20221010, end: 20221020
  8. FLUCONAZOLE [Concomitant]
     Active Substance: FLUCONAZOLE
     Dates: start: 20221010, end: 20221020
  9. HYCODAN [Concomitant]
     Active Substance: HOMATROPINE METHYLBROMIDE\HYDROCODONE BITARTRATE
     Dates: start: 20221010, end: 20221019
  10. LACTULOSE [Concomitant]
     Active Substance: LACTULOSE
     Dates: start: 20221010, end: 20221019
  11. LORAZEPAM [Concomitant]
     Active Substance: LORAZEPAM
     Dates: start: 20221010, end: 20221019
  12. MAGNESIUM OXIDE [Concomitant]
     Active Substance: MAGNESIUM OXIDE
     Dates: start: 20221012, end: 20221014
  13. METOPROLOL [Concomitant]
     Active Substance: METOPROLOL
     Dates: start: 20221011, end: 20221019
  14. OXYCODONE [Concomitant]
     Active Substance: OXYCODONE
     Dates: end: 20221020
  15. PANTOPRAZOLE [Concomitant]
     Active Substance: PANTOPRAZOLE
     Dates: start: 20221011, end: 20221020
  16. POLYETHYLENE GLYCOL [Concomitant]
     Active Substance: POLYETHYLENE GLYCOL
     Dates: end: 20221017
  17. POTASSIUM CHLORIDE [Concomitant]
     Active Substance: POTASSIUM CHLORIDE
     Dates: start: 20221011, end: 20221017
  18. SENNOSIDES [Concomitant]
     Active Substance: SENNOSIDES
     Dates: end: 20221020
  19. supersaturated calcium phosphate rinse [Concomitant]
     Dates: start: 20221010, end: 20221020
  20. VALACYCLOVIR [Concomitant]
     Active Substance: VALACYCLOVIR HYDROCHLORIDE
     Dates: start: 20221010, end: 20221020

REACTIONS (1)
  - Cytokine release syndrome [None]

NARRATIVE: CASE EVENT DATE: 20221014
